FAERS Safety Report 21859101 (Version 3)
Quarter: 2023Q4

REPORT INFORMATION
  Report Type: Spontaneous
  Country: US (occurrence: US)
  Receive Date: 20230113
  Receipt Date: 20231003
  Transmission Date: 20240110
  Serious: No
  Sender: FDA-Public Use
  Company Number: US-SA-SAC20230112001098

PATIENT
  Age: 46 Year
  Sex: Male

DRUGS (1)
  1. DUPIXENT [Suspect]
     Active Substance: DUPILUMAB
     Indication: Asthma
     Dosage: 300 MG, QOW
     Route: 058
     Dates: start: 20201216

REACTIONS (6)
  - Secretion discharge [Unknown]
  - Musculoskeletal stiffness [Unknown]
  - Wheezing [Unknown]
  - COVID-19 [Unknown]
  - Impaired quality of life [Unknown]
  - Drug ineffective [Unknown]
